FAERS Safety Report 17233392 (Version 2)
Quarter: 2020Q4

REPORT INFORMATION
  Report Type: Spontaneous
  Country: DE (occurrence: DE)
  Receive Date: 20200104
  Receipt Date: 20201102
  Transmission Date: 20210113
  Serious: Yes (Hospitalization)
  Sender: FDA-Public Use
  Company Number: DE-TEVA-2019-DE-1161133

PATIENT
  Age: 72 Year
  Sex: Female

DRUGS (20)
  1. MOXONIDINE [Concomitant]
     Active Substance: MOXONIDINE
     Dosage: .4 MILLIGRAM DAILY; 0.2 MG, 1-0-1-0
  2. TORASEMID ABZ 10MG [Concomitant]
     Active Substance: TORSEMIDE
     Dosage: 20 MILLIGRAM DAILY; 10 MG, 1-1-0-0, TABLETS
  3. NOVAMINSULFON [Concomitant]
     Active Substance: METAMIZOLE
     Dosage: 30-30-30-30
  4. ALLOPURINOL ABZ 300MG [Concomitant]
     Dosage: .5 DOSAGE FORMS DAILY; 300 MG, 0.5-0-0-0, TABLETS
  5. SULTANOL DOSIER-AERSOL [Concomitant]
     Dosage: 0.1 MG, IF NECESSARY, SPRAY
  6. EKLIRA GENUAIR 322MIKROGRAMM [Concomitant]
     Active Substance: ACLIDINIUM BROMIDE
     Dosage: 322 MICROGRAM DAILY; ?322 MICROGRAM, 1-0-0-0, INHALATION POWDER
  7. PREGABALIN ABZ 50MG [Concomitant]
     Dosage: 100 MILLIGRAM DAILY; 50 MG, 1-0-1-0, CAPSULE
  8. CELESTAMINE [Concomitant]
     Active Substance: BETAMETHASONE\DEXCHLORPHENIRAMINE MALEATE
     Dosage: NEED IN AN ALLERGIC EMERGENCY
  9. L-THYROX HEXAL 88 [Concomitant]
     Dosage: 0.088 MG
  10. TILIDIN 100/8 [Concomitant]
     Dosage: 3 DOSAGE FORMS DAILY; 8|100 MG, 1-1-1-0
  11. ATORVASTATIN [Concomitant]
     Active Substance: ATORVASTATIN
     Dosage: 40 MILLIGRAM DAILY; 40 MG, 0-0-1-0
  12. RAMIPRIL-ISIS 5MG [Concomitant]
     Dosage: 10 MILLIGRAM DAILY; 5 MG, 1-0-1-0, TABLETS
  13. DEKRISTOL 20000 I.E. [Concomitant]
     Active Substance: CHOLECALCIFEROL
     Dosage: 20000 IU / WEEK, 1X, CAPSULES
  14. ZYRTEC TROPFEN [Concomitant]
     Dosage: 10 MG / ML, NEED, DROPS
  15. PREDNISOLONE. [Suspect]
     Active Substance: PREDNISOLONE
     Dosage: 5 MILLIGRAM DAILY; 5 MG, 1-0-0-0, TABLETS
  16. PHENPROGAMMA 3 [Suspect]
     Active Substance: PHENPROCOUMON
     Dosage: 3 MG, ACCORDING TO PLAN, TABLETS
  17. FORMOTOP 6MIKROGRAMM [Concomitant]
     Dosage: 4 DOSAGE FORMS DAILY; 6 MICROGRAM 2-0-2-0, INHALATION POWDER
  18. BUDES N 0,2 MG/DOSIS [Concomitant]
     Dosage: 4 DOSAGE FORMS DAILY; 0.2 MG, 2-0-2-0, SPRAY
  19. PANTOPRAZOL [Concomitant]
     Active Substance: PANTOPRAZOLE SODIUM
     Dosage: 40 MILLIGRAM DAILY; 40 MG, 1-0-0-0
  20. ISOPTIN KHK RETARD 120MG [Concomitant]
     Dosage: 360 MILLIGRAM DAILY; 120 MG, 1-1-1-0, PROLONGED-RELEASE TABLETS

REACTIONS (1)
  - Haematochezia [Recovered/Resolved]

NARRATIVE: CASE EVENT DATE: 20191010
